FAERS Safety Report 6961366-1 (Version None)
Quarter: 2010Q3

REPORT INFORMATION
  Report Type: 
  Country: None (occurrence: None)
  Receive Date: 20100901
  Receipt Date: 20100825
  Transmission Date: 20110219
  Serious: Yes (Other)
  Sender: FDA-Public Use
  Company Number: B0672114A

PATIENT
  Sex: Female
  Weight: 55 kg

DRUGS (6)
  1. TYKERB [Suspect]
     Indication: BREAST CANCER
     Dosage: 1250MG PER DAY
     Route: 048
     Dates: start: 20100630, end: 20100712
  2. XELODA [Concomitant]
     Dosage: 3600MG PER DAY
     Route: 048
     Dates: start: 20100630, end: 20100712
  3. ZOMETA [Concomitant]
     Route: 042
     Dates: start: 20100609
  4. MUCOSTA [Concomitant]
     Indication: GASTRITIS
     Route: 048
     Dates: start: 20100630, end: 20100712
  5. LOPEMIN [Concomitant]
     Route: 048
     Dates: start: 20100630, end: 20100712
  6. UNKNOWN MEDICATION [Concomitant]
     Route: 048
     Dates: start: 20100630, end: 20100712

REACTIONS (1)
  - ECZEMA [None]
